FAERS Safety Report 22521795 (Version 9)
Quarter: 2025Q3

REPORT INFORMATION
  Report Type: Report from Study
  Country: US (occurrence: US)
  Receive Date: 20230605
  Receipt Date: 20250821
  Transmission Date: 20251020
  Serious: Yes (Other)
  Sender: NOVARTIS
  Company Number: US-002147023-NVSC2023US125446

PATIENT
  Sex: Female

DRUGS (6)
  1. KISQALI FEMARA CO-PACK [Suspect]
     Active Substance: LETROZOLE\RIBOCICLIB SUCCINATE
     Indication: Neoplasm malignant
     Route: 048
  2. KISQALI FEMARA CO-PACK [Suspect]
     Active Substance: LETROZOLE\RIBOCICLIB SUCCINATE
     Indication: Neoplasm malignant
     Dosage: 400 MG, QD
     Route: 065
     Dates: start: 20230602
  3. KISQALI FEMARA CO-PACK [Suspect]
     Active Substance: LETROZOLE\RIBOCICLIB SUCCINATE
     Dosage: 200 MG, TID
     Route: 048
  4. KISQALI [Suspect]
     Active Substance: RIBOCICLIB SUCCINATE
     Indication: Invasive lobular breast carcinoma
     Dosage: 400 MG, QD
     Route: 048
     Dates: start: 20230602
  5. KISQALI [Suspect]
     Active Substance: RIBOCICLIB SUCCINATE
     Dosage: 400 MG, QD
     Route: 048
     Dates: end: 20240418
  6. KISQALI [Suspect]
     Active Substance: RIBOCICLIB SUCCINATE
     Route: 048

REACTIONS (9)
  - Invasive lobular breast carcinoma [Unknown]
  - Malignant neoplasm progression [Unknown]
  - Neoplasm malignant [Unknown]
  - Pain [Unknown]
  - Malaise [Unknown]
  - Illness [Unknown]
  - Cough [Unknown]
  - Product prescribing issue [Unknown]
  - Drug ineffective [Unknown]
